FAERS Safety Report 9301298 (Version 2)
Quarter: 2013Q3

REPORT INFORMATION
  Report Type: Spontaneous
  Country: US (occurrence: US)
  Receive Date: 20130521
  Receipt Date: 20130705
  Transmission Date: 20140515
  Serious: Yes (Hospitalization, Other)
  Sender: FDA-Public Use
  Company Number: US-ABBOTT-13P-163-1090105-00

PATIENT
  Age: 35 Year
  Sex: Female
  Weight: 68.1 kg

DRUGS (5)
  1. LUPRON DEPOT [Suspect]
     Indication: UTERINE LEIOMYOMA
     Dates: start: 20130416, end: 201305
  2. VIT D [Concomitant]
     Indication: PRODUCT USED FOR UNKNOWN INDICATION
     Route: 048
  3. HICRONOR [Concomitant]
     Indication: PRODUCT USED FOR UNKNOWN INDICATION
     Dosage: PROGESTIN ONLY
     Route: 048
     Dates: start: 20130312, end: 20130416
  4. MVI [Concomitant]
     Indication: PRODUCT USED FOR UNKNOWN INDICATION
     Route: 048
  5. MICROGESTIN FE [Concomitant]
     Indication: CONTRACEPTION
     Dosage: 1/20 COCP
     Route: 048
     Dates: start: 20130101, end: 20130312

REACTIONS (4)
  - Local swelling [Recovered/Resolved]
  - Deep vein thrombosis [Recovered/Resolved]
  - Pulmonary thrombosis [Unknown]
  - May-Thurner syndrome [Unknown]
